FAERS Safety Report 17521723 (Version 1)
Quarter: 2020Q1

REPORT INFORMATION
  Report Type: Spontaneous
  Country: None (occurrence: US)
  Receive Date: 20200310
  Receipt Date: 20200310
  Transmission Date: 20200409
  Serious: No
  Sender: FDA-Public Use
  Company Number: US-FARMAPROD-201910-1714

PATIENT
  Sex: Female

DRUGS (4)
  1. OZONE INJECTION [Concomitant]
  2. OXERVATE [Suspect]
     Active Substance: CENEGERMIN-BKBJ
     Indication: NEUROTROPHIC KERATOPATHY
     Route: 047
  3. MURO 128 OINTMENT [Concomitant]
     Dosage: AT BEDTIME
  4. TEARS [Concomitant]
     Active Substance: LANOLIN\PARAFFIN

REACTIONS (3)
  - Photophobia [Unknown]
  - Eye pain [Unknown]
  - Sensation of foreign body [Unknown]
